FAERS Safety Report 5804605-2 (Version None)
Quarter: 2008Q3

REPORT INFORMATION
  Report Type: 
  Country: None (occurrence: None)
  Receive Date: 20080702
  Receipt Date: 20071008
  Transmission Date: 20090109
  Serious: Yes (Hospitalization)
  Sender: FDA-Public Use
  Company Number: 523758

PATIENT
  Age: 47 Year
  Sex: Male
  Weight: 79.4 kg

DRUGS (5)
  1. KLONOPIN [Suspect]
     Indication: CONVULSION
     Dosage: 3 DOSE FORM 2 PER DAY
  2. REBIF [Suspect]
     Indication: MULTIPLE SCLEROSIS
     Dosage: 44 MCG 3 PER WEEK SUBCUTANEOUS
     Route: 058
     Dates: start: 20060315
  3. BEER (ALCOHOL) [Suspect]
     Indication: DRUG USE FOR UNKNOWN INDICATION
  4. AMITRIPTLINE HYDROCHLORIDE TAB [Concomitant]
  5. TRAZODONE (TRAZODONE HYDROCHLORIDE) [Concomitant]

REACTIONS (1)
  - FEELING ABNORMAL [None]
